FAERS Safety Report 7322741-9 (Version None)
Quarter: 2011Q1

REPORT INFORMATION
  Report Type: 
  Country: None (occurrence: None)
  Receive Date: 20110216
  Receipt Date: 20110201
  Transmission Date: 20110831
  Serious: Yes (Hospitalization)
  Sender: FDA-Public Use
  Company Number: 2008002474

PATIENT
  Age: 68 Year
  Sex: Female
  Weight: 59 kg

DRUGS (16)
  1. LOXONIN (LOXOPROFEN SODIUM) [Concomitant]
  2. POLARAMINE [Concomitant]
  3. ERLOTINIB (ERLOTINIB) (TABLET) (ERLOTINIB) [Suspect]
     Indication: LUNG ADENOCARCINOMA
     Dosage: (150 MG, QD), ORAL
     Route: 048
     Dates: start: 20080515, end: 20080909
  4. PREDNISOLONE [Suspect]
     Indication: HENOCH-SCHONLEIN PURPURA
     Dosage: (20 MG, QD), ORAL
     Route: 048
     Dates: start: 20080912, end: 20080919
  5. LENDORM [Concomitant]
  6. ALOSENN (ALOSENN) [Concomitant]
  7. MAGNESIUM OXIDE (MAGNESIUM OXIDE) [Concomitant]
  8. ZOMETA [Concomitant]
  9. GASTER D [Concomitant]
  10. KAKKON-TO (KAKKON-TO) [Concomitant]
  11. DIOVAN [Concomitant]
  12. ACTONEL [Concomitant]
  13. SODIUM HYALURONATE (HYALURONATE SODIUM) [Concomitant]
  14. RHYTHMY (RILMAZAFONE) [Concomitant]
  15. ASTOMIN (DIMEMORFAN PHOSPHATE) [Concomitant]
  16. DEQUALINIUM CHLORIDE (DEQUALINIUM CHLORIDE) [Concomitant]

REACTIONS (7)
  - PARONYCHIA [None]
  - PNEUMOCYSTIS JIROVECI PNEUMONIA [None]
  - DYSSTASIA [None]
  - ERYTHEMA MULTIFORME [None]
  - HYPERBILIRUBINAEMIA [None]
  - GAIT DISTURBANCE [None]
  - HENOCH-SCHONLEIN PURPURA [None]
